FAERS Safety Report 15868233 (Version 7)
Quarter: 2020Q2

REPORT INFORMATION
  Report Type: Report from Study
  Country: DE (occurrence: DE)
  Receive Date: 20190125
  Receipt Date: 20200528
  Transmission Date: 20200713
  Serious: Yes (Other)
  Sender: FDA-Public Use
  Company Number: PHHY2019DE004342

PATIENT
  Sex: Female
  Weight: 73 kg

DRUGS (6)
  1. LETROZOLE. [Suspect]
     Active Substance: LETROZOLE
     Indication: BREAST CANCER
  2. LETROZOLE. [Suspect]
     Active Substance: LETROZOLE
     Indication: BREAST CANCER METASTATIC
     Dosage: 2.5 MG, QD (1-0-0)
     Route: 048
     Dates: start: 20181123, end: 20191106
  3. KISQALI [Suspect]
     Active Substance: RIBOCICLIB
     Indication: BREAST CANCER METASTATIC
     Dosage: 600 MG, UNK (ADMINISTRATION SCHEME 21 DAYS INTAKE, 7 DAYS PAUSE)
     Route: 048
     Dates: start: 20181204, end: 20190114
  4. FULVESTRANT. [Suspect]
     Active Substance: FULVESTRANT
     Indication: BREAST CANCER
     Dosage: 500 MG 2W/FOR 3 CYCLES, AS FROM 3CYCLES EVERY 4 WEEKS
     Route: 030
     Dates: start: 20191106
  5. KISQALI [Suspect]
     Active Substance: RIBOCICLIB
     Dosage: 600 MG, 21 DAYS INTAKE, THEN 7 DAYS PAUSE
     Route: 048
     Dates: start: 20191106
  6. KISQALI [Suspect]
     Active Substance: RIBOCICLIB
     Indication: BREAST CANCER
     Dosage: 600 MG, 21 DAYS INTAKE, THEN 7 DAYS PAUSE
     Route: 048
     Dates: start: 20190128, end: 20191028

REACTIONS (7)
  - Pruritus [Unknown]
  - Dizziness [Recovered/Resolved]
  - Dry skin [Unknown]
  - Palmar-plantar erythrodysaesthesia syndrome [Recovered/Resolved]
  - Weight decreased [Unknown]
  - Arthralgia [Recovered/Resolved]
  - Abscess [Recovered/Resolved]

NARRATIVE: CASE EVENT DATE: 20181220
